FAERS Safety Report 7047278-6 (Version None)
Quarter: 2010Q4

REPORT INFORMATION
  Report Type: 
  Country: None (occurrence: None)
  Receive Date: 20101015
  Receipt Date: 20101011
  Transmission Date: 20110411
  Serious: Yes (Hospitalization, Other)
  Sender: FDA-Public Use
  Company Number: NL-ROCHE-731900

PATIENT
  Sex: Female

DRUGS (2)
  1. VESANOID [Suspect]
     Route: 048
     Dates: start: 20100907, end: 20101006
  2. DEXAMETHASONE [Concomitant]
     Dates: start: 20100907

REACTIONS (5)
  - CONFUSIONAL STATE [None]
  - FUNGAL INFECTION [None]
  - INFLAMMATION [None]
  - LYMPHOCYTE COUNT DECREASED [None]
  - PYREXIA [None]
